FAERS Safety Report 4974255-9 (Version None)
Quarter: 2006Q1

REPORT INFORMATION
  Report Type: 
  Country: None (occurrence: None)
  Receive Date: 20060227
  Receipt Date: 20051220
  Transmission Date: 20060701
  Serious: No
  Sender: FDA-Public Use
  Company Number: PHEH2005US13713

PATIENT
  Age: 65 Year
  Sex: Male

DRUGS (2)
  1. ENABLEX [Suspect]
     Indication: MUSCLE SPASMS
     Dosage: 15 MG, QD
     Dates: start: 20051217
  2. LIPITOR [Concomitant]

REACTIONS (2)
  - CONSTIPATION [None]
  - DRY MOUTH [None]
